FAERS Safety Report 21498757 (Version 2)
Quarter: 2022Q4

REPORT INFORMATION
  Report Type: Spontaneous
  Country: ES (occurrence: ES)
  Receive Date: 20221024
  Receipt Date: 20221109
  Transmission Date: 20230113
  Serious: Yes (Other)
  Sender: FDA-Public Use
  Company Number: ES-MYLANLABS-2022M1116563

PATIENT
  Age: 65 Year
  Sex: Male
  Weight: 100 kg

DRUGS (5)
  1. ARIXTRA [Suspect]
     Active Substance: FONDAPARINUX SODIUM
     Indication: Superficial vein thrombosis
     Dosage: 2.5 MILLIGRAM, UNK
     Route: 065
     Dates: start: 20220712, end: 20220805
  2. ARIXTRA [Suspect]
     Active Substance: FONDAPARINUX SODIUM
     Dosage: 2.5 MILLIGRAM
     Route: 065
     Dates: start: 20220811
  3. METFORMIN HYDROCHLORIDE [Concomitant]
     Active Substance: METFORMIN HYDROCHLORIDE
     Indication: Diabetes mellitus
     Dosage: UNK
     Route: 065
  4. SERENOA REPENS WHOLE [Concomitant]
     Active Substance: SERENOA REPENS WHOLE
     Indication: Benign prostatic hyperplasia
     Dosage: UNK
     Route: 065
  5. IBUPROFEN [Concomitant]
     Active Substance: IBUPROFEN
     Dosage: UNK
     Route: 065

REACTIONS (1)
  - Superficial vein thrombosis [Unknown]

NARRATIVE: CASE EVENT DATE: 20220811
